FAERS Safety Report 19008977 (Version 3)
Quarter: 2021Q1

REPORT INFORMATION
  Report Type: Spontaneous
  Country: JP (occurrence: JP)
  Receive Date: 20210315
  Receipt Date: 20210325
  Transmission Date: 20210420
  Serious: Yes (Death, Hospitalization, Other)
  Sender: FDA-Public Use
  Company Number: JP-PFIZER INC-2021261892

PATIENT
  Age: 68 Year
  Sex: Female

DRUGS (2)
  1. RAMUCIRUMAB [Suspect]
     Active Substance: RAMUCIRUMAB
     Indication: METASTATIC GASTRIC CANCER
     Dosage: 8 MG/KG, CYCLIC (ON DAYS 1, 15, EVERY 3 WEEKS)
     Dates: start: 2019, end: 2019
  2. PACLITAXEL. [Suspect]
     Active Substance: PACLITAXEL
     Indication: METASTATIC GASTRIC CANCER
     Dosage: 80 MG/M2, CYCLIC (ON DAYS 1, 8, 15)
     Dates: start: 2019, end: 2019

REACTIONS (1)
  - Spinal epidural haematoma [Recovering/Resolving]

NARRATIVE: CASE EVENT DATE: 2019
